FAERS Safety Report 23164003 (Version 3)
Quarter: 2024Q1

REPORT INFORMATION
  Report Type: Spontaneous
  Country: US (occurrence: US)
  Receive Date: 20231109
  Receipt Date: 20240306
  Transmission Date: 20240409
  Serious: No
  Sender: FDA-Public Use
  Company Number: US-PFIZER INC-PV202300176870

PATIENT
  Age: 16 Year
  Sex: Female

DRUGS (1)
  1. GENOTROPIN [Suspect]
     Active Substance: SOMATROPIN
     Dosage: 2.8 MG
     Dates: start: 2023

REACTIONS (5)
  - Wrong technique in device usage process [Unknown]
  - Drug dose omission by device [Unknown]
  - Device occlusion [Unknown]
  - Device breakage [Unknown]
  - Device information output issue [Unknown]
